FAERS Safety Report 6176822-6 (Version None)
Quarter: 2009Q2

REPORT INFORMATION
  Report Type: 
  Country: None (occurrence: None)
  Receive Date: 20090501
  Receipt Date: 20090424
  Transmission Date: 20091009
  Serious: Yes (Hospitalization, Other)
  Sender: FDA-Public Use
  Company Number: PHEH2009US01410

PATIENT
  Sex: Female
  Weight: 92.063 kg

DRUGS (5)
  1. ZOMETA [Suspect]
     Indication: MULTIPLE MYELOMA
     Dosage: UNK
     Route: 042
     Dates: start: 20030101
  2. GLIPIZIDE [Concomitant]
     Dosage: 5MG TWICE DAILY
  3. ATACAND HCT [Concomitant]
     Dosage: 16/12.5MG
  4. FAMOTIDINE [Concomitant]
     Dosage: 20MG TWICE DAILY
  5. DECADRON                                /CAN/ [Concomitant]

REACTIONS (15)
  - ANAEMIA [None]
  - BONE DISORDER [None]
  - BONE OPERATION [None]
  - CENTRAL VENOUS CATHETERISATION [None]
  - HYPOAESTHESIA [None]
  - LOCAL SWELLING [None]
  - NECK PAIN [None]
  - OSTEOMYELITIS [None]
  - OSTEONECROSIS [None]
  - PAIN IN JAW [None]
  - PARAESTHESIA [None]
  - PAROTID GLAND ENLARGEMENT [None]
  - TOOTH EXTRACTION [None]
  - TOOTH LOSS [None]
  - TRANSFUSION [None]
